FAERS Safety Report 9449282 (Version 1)
Quarter: 2013Q3

REPORT INFORMATION
  Report Type: Report from Study
  Country: US (occurrence: US)
  Receive Date: 20130808
  Receipt Date: 20130808
  Transmission Date: 20140515
  Serious: Yes (Other)
  Sender: FDA-Public Use
  Company Number: US-US-EMD SERONO, INC.-7227944

PATIENT
  Age: 55 Year
  Sex: Female

DRUGS (2)
  1. REBIF [Suspect]
     Indication: MULTIPLE SCLEROSIS
     Route: 058
     Dates: start: 20120817, end: 20130701
  2. TEGRETOL [Concomitant]
     Indication: CONVULSION

REACTIONS (3)
  - Loss of consciousness [Recovering/Resolving]
  - Anticonvulsant drug level below therapeutic [Unknown]
  - Pruritus [Recovering/Resolving]
